FAERS Safety Report 18487619 (Version 5)
Quarter: 2022Q1

REPORT INFORMATION
  Report Type: Report from Study
  Country: FR (occurrence: FR)
  Receive Date: 20201110
  Receipt Date: 20220127
  Transmission Date: 20220423
  Serious: Yes (Hospitalization, Other)
  Sender: FDA-Public Use
  Company Number: FR-BRISTOL-MYERS SQUIBB COMPANY-BMS-2020-093750

PATIENT
  Age: 68 Year
  Sex: Female
  Weight: 53 kg

DRUGS (4)
  1. NIVOLUMAB [Suspect]
     Active Substance: NIVOLUMAB
     Indication: Malignant melanoma stage III
     Dosage: 240 MILLIGRAM
     Route: 042
     Dates: start: 20201019, end: 20201019
  2. IPILIMUMAB [Suspect]
     Active Substance: IPILIMUMAB
     Indication: Malignant melanoma stage III
     Dosage: 20 MILLIGRAM
     Route: 036
     Dates: start: 20201021, end: 20201021
  3. INNOVAIR [Concomitant]
     Active Substance: BECLOMETHASONE DIPROPIONATE\FORMOTEROL
     Indication: Product used for unknown indication
     Dosage: UNK, QD
     Route: 065
  4. BRICANYL [Concomitant]
     Active Substance: TERBUTALINE SULFATE
     Indication: Product used for unknown indication
     Dosage: UNK, QD
     Route: 065

REACTIONS (4)
  - Staphylococcal bacteraemia [Recovered/Resolved]
  - Dermo-hypodermitis [Recovered/Resolved]
  - Administration site abscess [Recovered/Resolved]
  - Administration site haematoma [Recovered/Resolved]

NARRATIVE: CASE EVENT DATE: 20201022
